FAERS Safety Report 6755969-7 (Version None)
Quarter: 2010Q2

REPORT INFORMATION
  Report Type: 
  Country: None (occurrence: None)
  Receive Date: 20100604
  Receipt Date: 20100525
  Transmission Date: 20101027
  Serious: Yes (Other)
  Sender: FDA-Public Use
  Company Number: PHHY2010CA34763

PATIENT

DRUGS (1)
  1. EXELON [Suspect]
     Route: 062

REACTIONS (5)
  - BLISTER [None]
  - ERYTHEMA [None]
  - PRURITUS [None]
  - RASH [None]
  - ULCER [None]
